FAERS Safety Report 15084534 (Version 1)
Quarter: 2018Q2

REPORT INFORMATION
  Report Type: Spontaneous
  Country: US (occurrence: US)
  Receive Date: 20180628
  Receipt Date: 20180628
  Transmission Date: 20180711
  Serious: No
  Sender: FDA-Public Use
  Company Number: US-MAYNE PHARMA-2018MYN000345

PATIENT

DRUGS (2)
  1. DOXYCYCLINE HYCLATE DELAYED-REL TABLET [Suspect]
     Active Substance: DOXYCYCLINE HYCLATE
     Indication: CHEILITIS
  2. DOXYCYCLINE HYCLATE DELAYED-REL TABLET [Suspect]
     Active Substance: DOXYCYCLINE HYCLATE
     Indication: ROSACEA
     Dosage: UNK
     Route: 048
     Dates: start: 2016

REACTIONS (1)
  - Abdominal discomfort [Recovered/Resolved]
